FAERS Safety Report 8204984-5 (Version None)
Quarter: 2012Q1

REPORT INFORMATION
  Report Type: 
  Country: None (occurrence: None)
  Receive Date: 20120309
  Receipt Date: 20120227
  Transmission Date: 20120608
  Serious: Yes (Other)
  Sender: FDA-Public Use
  Company Number: 2012P1008381

PATIENT
  Age: 67 Year
  Sex: Male
  Weight: 50 kg

DRUGS (5)
  1. RIFAMPICIN [Concomitant]
  2. PYRAZINAMIDE [Suspect]
     Indication: PULMONARY TUBERCULOSIS
     Dosage: ;THREE TIMES A WEEK;     250MG;
  3. ISONIAZID [Concomitant]
  4. ETHAMBUTOL HYDROCHLORIDE [Suspect]
     Indication: PULMONARY TUBERCULOSIS
     Dosage: ;THREE TIMES A WEEK;   100 MG;
  5. ETHAMBUTOL HYDROCHLORIDE [Suspect]
     Indication: PULMONARY TUBERCULOSIS
     Dosage: ;THREE TIMES A WEEK;   100 MG;

REACTIONS (3)
  - HAEMOGLOBIN DECREASED [None]
  - PULMONARY TUBERCULOSIS [None]
  - TOXIC EPIDERMAL NECROLYSIS [None]
